FAERS Safety Report 8236051-9 (Version None)
Quarter: 2012Q1

REPORT INFORMATION
  Report Type: 
  Country: None (occurrence: None)
  Receive Date: 20120326
  Receipt Date: 20120315
  Transmission Date: 20120608
  Serious: Yes (Other)
  Sender: FDA-Public Use
  Company Number: US-ASTRAZENECA-2012SE10836

PATIENT
  Age: 77 Year
  Sex: Female

DRUGS (2)
  1. NEXIUM [Suspect]
     Route: 048
  2. CHEMOTHERAPY [Suspect]
     Route: 065

REACTIONS (5)
  - CARDIAC DISORDER [None]
  - METASTATIC NEOPLASM [None]
  - OSTEOPOROSIS [None]
  - OSTEOPENIA [None]
  - GASTRIC DISORDER [None]
